FAERS Safety Report 10196126 (Version 1)
Quarter: 2014Q2

REPORT INFORMATION
  Report Type: Spontaneous
  Country: US (occurrence: US)
  Receive Date: 20140527
  Receipt Date: 20140527
  Transmission Date: 20141212
  Serious: Yes (Other)
  Sender: FDA-Public Use
  Company Number: US-RANBAXY-2014US-81474

PATIENT
  Sex: Female

DRUGS (5)
  1. CITALOPRAM [Suspect]
     Indication: POST-TRAUMATIC STRESS DISORDER
     Route: 065
  2. LORAZEPAM [Suspect]
     Indication: POST-TRAUMATIC STRESS DISORDER
     Route: 065
  3. MIRTAZAPINE [Suspect]
     Indication: POST-TRAUMATIC STRESS DISORDER
     Route: 065
  4. PAROXETINE [Suspect]
     Indication: POST-TRAUMATIC STRESS DISORDER
     Route: 065
  5. SERTRALINE [Suspect]
     Indication: POST-TRAUMATIC STRESS DISORDER
     Route: 065

REACTIONS (1)
  - Drug withdrawal syndrome [Unknown]
